FAERS Safety Report 12901478 (Version 1)
Quarter: 2016Q4

REPORT INFORMATION
  Report Type: Spontaneous
  Country: US (occurrence: US)
  Receive Date: 20161102
  Receipt Date: 20161102
  Transmission Date: 20170207
  Serious: No
  Sender: FDA-Public Use
  Company Number: US-TAIHO ONCOLOGY INC-EU-2016-01983

PATIENT
  Age: 64 Year
  Sex: Female
  Weight: 46.76 kg

DRUGS (1)
  1. LONSURF [Suspect]
     Active Substance: TIPIRACIL HYDROCHLORIDE\TRIFLURIDINE
     Indication: COLON CANCER
     Dosage: CURRENT CYCLE 5
     Route: 048
     Dates: start: 20160706, end: 20161025

REACTIONS (2)
  - Muscle spasms [Unknown]
  - Disease progression [Unknown]

NARRATIVE: CASE EVENT DATE: 201607
